FAERS Safety Report 7207013-5 (Version None)
Quarter: 2010Q4

REPORT INFORMATION
  Report Type: 
  Country: None (occurrence: None)
  Receive Date: 20101221
  Receipt Date: 20101209
  Transmission Date: 20110411
  Serious: Yes (Death)
  Sender: FDA-Public Use
  Company Number: TRP_07446_2010

PATIENT
  Age: 77 Year
  Sex: Female

DRUGS (2)
  1. AMPHOTERICIN B [Suspect]
     Indication: MUCORMYCOSIS
     Dosage: DF
  2. ANTIBIBIOTICS [Concomitant]

REACTIONS (5)
  - BRAIN ABSCESS [None]
  - CEREBRAL FUNGAL INFECTION [None]
  - CHRONIC LYMPHOCYTIC LEUKAEMIA [None]
  - MALIGNANT NEOPLASM PROGRESSION [None]
  - NERVOUS SYSTEM DISORDER [None]
